FAERS Safety Report 14742258 (Version 1)
Quarter: 2018Q2

REPORT INFORMATION
  Report Type: Spontaneous
  Country: RU (occurrence: RU)
  Receive Date: 20180410
  Receipt Date: 20180410
  Transmission Date: 20180711
  Serious: Yes (Other)
  Sender: FDA-Public Use
  Company Number: RU-PFIZER INC-2018142183

PATIENT
  Age: 60 Year
  Sex: Female

DRUGS (1)
  1. SUTENT [Suspect]
     Active Substance: SUNITINIB MALATE
     Indication: RENAL CELL CARCINOMA
     Dosage: 50 MG, CYCLIC: (4+2)
     Route: 048
     Dates: start: 201403, end: 201504

REACTIONS (2)
  - Hypertensive crisis [Recovered/Resolved with Sequelae]
  - Vestibular ataxia [Recovered/Resolved with Sequelae]

NARRATIVE: CASE EVENT DATE: 201412
